FAERS Safety Report 9792688 (Version 1)
Quarter: 2014Q1

REPORT INFORMATION
  Report Type: Spontaneous
  Country: US (occurrence: US)
  Receive Date: 20140102
  Receipt Date: 20140102
  Transmission Date: 20141002
  Serious: No
  Sender: FDA-Public Use
  Company Number: US-SA-2013SA109470

PATIENT
  Sex: 0

DRUGS (5)
  1. AUBAGIO [Suspect]
  2. ETHYL FUMARATE ZINC/DIMETHYL FUMARATE/ETHYL FUMARATE MAGNESIUM/ETHYL FUMARATE CALCIUM [Concomitant]
  3. COPAXONE [Concomitant]
  4. REBIF [Concomitant]
  5. AVONEX [Concomitant]

REACTIONS (1)
  - Diarrhoea [Unknown]
